FAERS Safety Report 5517980-3 (Version None)
Quarter: 2007Q4

REPORT INFORMATION
  Report Type: 
  Country: None (occurrence: None)
  Receive Date: 20071114
  Receipt Date: 20071114
  Transmission Date: 20080405
  Serious: No
  Sender: FDA-Public Use
  Company Number: None

PATIENT
  Age: 67 Year
  Sex: Female
  Weight: 99.7913 kg

DRUGS (2)
  1. BONIVA [Suspect]
     Indication: OSTEOPENIA
     Dosage: 150MG EVERY MONTH PO; 2 DOSES SEVERE BONE PAIN
     Route: 048
     Dates: start: 20060106, end: 20060307
  2. ACTONEL [Suspect]
     Indication: OSTEOPENIA
     Dosage: ACTONEL EVERY WEEK PO, ALMOST 2 YEARS
     Route: 048
     Dates: start: 20040426, end: 20051126

REACTIONS (5)
  - BONE PAIN [None]
  - FALL [None]
  - FRACTURE NONUNION [None]
  - IMPAIRED HEALING [None]
  - PUBIC RAMI FRACTURE [None]
